FAERS Safety Report 20608830 (Version 1)
Quarter: 2022Q1

REPORT INFORMATION
  Report Type: Spontaneous
  Country: CN (occurrence: CN)
  Receive Date: 20220317
  Receipt Date: 20220317
  Transmission Date: 20220423
  Serious: Yes (Hospitalization, Other)
  Sender: FDA-Public Use
  Company Number: CN-009507513-2203CHN005078

PATIENT
  Age: 72 Year
  Sex: Male
  Weight: 61 kg

DRUGS (1)
  1. KEYTRUDA [Suspect]
     Active Substance: PEMBROLIZUMAB
     Indication: Lung neoplasm malignant
     Dosage: 200 MG,  EVERY THREE WEEKS (Q3W)
     Route: 041
     Dates: start: 20210929, end: 20211225

REACTIONS (5)
  - Cardiac failure [Recovering/Resolving]
  - Sinus arrhythmia [Unknown]
  - Myocardial infarction [Unknown]
  - Ill-defined disorder [Unknown]
  - Myocarditis [Recovering/Resolving]

NARRATIVE: CASE EVENT DATE: 20220201
